FAERS Safety Report 20564786 (Version 1)
Quarter: 2022Q1

REPORT INFORMATION
  Report Type: Spontaneous
  Country: US (occurrence: US)
  Receive Date: 20220308
  Receipt Date: 20220308
  Transmission Date: 20220423
  Serious: No
  Sender: FDA-Public Use
  Company Number: US-ALLERGAN-2135172US

PATIENT
  Sex: Female

DRUGS (1)
  1. ESTRADIOL [Suspect]
     Active Substance: ESTRADIOL
     Indication: Vulvovaginal dryness
     Dosage: DAILY FOR 2 WEEKS, NOW 3 TIMES PER WEEK
     Route: 067
     Dates: start: 202110

REACTIONS (4)
  - Pain [Unknown]
  - Vulvovaginal injury [Unknown]
  - Wrong technique in product usage process [Unknown]
  - Device issue [Unknown]
